FAERS Safety Report 8151072-2 (Version None)
Quarter: 2012Q1

REPORT INFORMATION
  Report Type: 
  Country: None (occurrence: None)
  Receive Date: 20120220
  Receipt Date: 20120215
  Transmission Date: 20120608
  Serious: Yes (Hospitalization, Disabling)
  Sender: FDA-Public Use
  Company Number: US-MERCK-1110USA02427

PATIENT
  Age: 54 Year
  Sex: Female
  Weight: 105 kg

DRUGS (4)
  1. FOSAMAX [Suspect]
     Indication: OSTEOARTHRITIS
     Route: 048
     Dates: start: 20010425, end: 20080301
  2. FOSAMAX [Suspect]
     Route: 048
     Dates: start: 20080821, end: 20090401
  3. FOSAMAX [Suspect]
     Indication: OSTEOPOROSIS
     Route: 048
     Dates: start: 20010425, end: 20080301
  4. FOSAMAX [Suspect]
     Route: 048
     Dates: start: 20080821, end: 20090401

REACTIONS (12)
  - OSTEOARTHRITIS [None]
  - FUNGAL INFECTION [None]
  - UPPER LIMB FRACTURE [None]
  - DEPRESSION [None]
  - JOINT EFFUSION [None]
  - ARTHROPATHY [None]
  - LOW TURNOVER OSTEOPATHY [None]
  - OFF LABEL USE [None]
  - ANXIETY [None]
  - PERIODONTAL DISEASE [None]
  - FEMUR FRACTURE [None]
  - TENDONITIS [None]
